APPROVED DRUG PRODUCT: PREMPHASE (PREMARIN;CYCRIN 14/14)
Active Ingredient: ESTROGENS, CONJUGATED; MEDROXYPROGESTERONE ACETATE
Strength: 0.625MG,0.625MG;N/A,5MG
Dosage Form/Route: TABLET;ORAL-28
Application: N020303 | Product #002
Applicant: WYETH PHARMACEUTICALS INC
Approved: Dec 30, 1994 | RLD: No | RS: No | Type: DISCN